FAERS Safety Report 13337602 (Version 1)
Quarter: 2017Q1

REPORT INFORMATION
  Report Type: Spontaneous
  Country: US (occurrence: US)
  Receive Date: 20170314
  Receipt Date: 20170314
  Transmission Date: 20170428
  Serious: No
  Sender: FDA-Public Use
  Company Number: None

PATIENT
  Age: 49 Year
  Sex: Male

DRUGS (4)
  1. ADCIRCA [Suspect]
     Active Substance: TADALAFIL
     Indication: CHRONIC OBSTRUCTIVE PULMONARY DISEASE
  2. ADCIRCA [Suspect]
     Active Substance: TADALAFIL
     Indication: HYPOXIA
  3. ADCIRCA [Suspect]
     Active Substance: TADALAFIL
     Indication: INTERSTITIAL LUNG DISEASE
  4. ADCIRCA [Suspect]
     Active Substance: TADALAFIL
     Indication: PULMONARY ARTERIAL HYPERTENSION

REACTIONS (5)
  - Somnolence [None]
  - Dysgeusia [None]
  - Fluid intake reduced [None]
  - Confusional state [None]
  - Decreased appetite [None]

NARRATIVE: CASE EVENT DATE: 20170314
